FAERS Safety Report 7644804-0 (Version None)
Quarter: 2011Q3

REPORT INFORMATION
  Report Type: 
  Country: None (occurrence: None)
  Receive Date: 20110729
  Receipt Date: 20110609
  Transmission Date: 20111222
  Serious: Yes (Other)
  Sender: FDA-Public Use
  Company Number: DE-JNJFOC-20090903582

PATIENT
  Sex: Male

DRUGS (13)
  1. IMPROMEN [Concomitant]
     Indication: ANXIETY
     Route: 065
     Dates: start: 20040101, end: 20040101
  2. RISPERDAL [Suspect]
     Indication: SCHIZOPHRENIA, PARANOID TYPE
     Route: 065
     Dates: start: 20040202
  3. AMBROXOL [Concomitant]
     Route: 065
     Dates: start: 20041001
  4. RISPERDAL [Suspect]
     Route: 065
     Dates: start: 20041001, end: 20060101
  5. RISPERDAL [Suspect]
     Route: 065
     Dates: start: 20040301
  6. HALDOL [Concomitant]
     Indication: SCHIZOPHRENIA, PARANOID TYPE
     Route: 065
     Dates: start: 20040101, end: 20040101
  7. ZOLOFT [Concomitant]
     Route: 048
     Dates: start: 20041001
  8. ZOPICLON [Concomitant]
     Route: 048
     Dates: start: 20040301
  9. BIPERIDEN [Concomitant]
     Route: 048
     Dates: start: 20040301
  10. EMSER SOLE [Concomitant]
     Route: 055
     Dates: start: 20041001
  11. BIPERIDEN [Concomitant]
     Indication: EXTRAPYRAMIDAL DISORDER
     Route: 048
     Dates: start: 20041001
  12. LORAZEPAM [Concomitant]
     Route: 048
     Dates: start: 20040201
  13. BERLINSULIN H NORMAL [Concomitant]
     Indication: DIABETES MELLITUS
     Route: 050
     Dates: start: 20051201, end: 20090301

REACTIONS (1)
  - TYPE 1 DIABETES MELLITUS [None]
